FAERS Safety Report 24529306 (Version 1)
Quarter: 2024Q4

REPORT INFORMATION
  Report Type: Spontaneous
  Country: US (occurrence: None)
  Receive Date: 20241020
  Receipt Date: 20241020
  Transmission Date: 20250115
  Serious: Yes (Other)
  Sender: Public
  Company Number: None

PATIENT
  Age: 57 Year
  Sex: Female
  Weight: 59.85 kg

DRUGS (9)
  1. SEMAGLUTIDE [Suspect]
     Active Substance: SEMAGLUTIDE
     Indication: Weight decreased
     Dates: start: 20240829, end: 20241007
  2. BIJUVA [Concomitant]
  3. ZOLOFT [Concomitant]
  4. ATIVAN [Concomitant]
  5. MAGNESIUM [Concomitant]
  6. FOLATE [Concomitant]
  7. vitamin d [Concomitant]
  8. iron supplements [Concomitant]
  9. vitamin c with iron [Concomitant]

REACTIONS (6)
  - Anxiety [None]
  - Panic attack [None]
  - Insomnia [None]
  - Feeling abnormal [None]
  - Headache [None]
  - Loss of personal independence in daily activities [None]

NARRATIVE: CASE EVENT DATE: 20241016
